FAERS Safety Report 24174747 (Version 2)
Quarter: 2024Q3

REPORT INFORMATION
  Report Type: Spontaneous
  Country: JP (occurrence: JP)
  Receive Date: 20240805
  Receipt Date: 20240829
  Transmission Date: 20241017
  Serious: Yes (Death)
  Sender: TEVA
  Company Number: JP-TEVA-VS-3227379

PATIENT
  Sex: Female

DRUGS (2)
  1. MIRTAZAPINE [Suspect]
     Active Substance: MIRTAZAPINE
     Indication: Sleep disorder
     Dosage: EMPTY PACKETS OF 60 MIRTAZAPINE 15MG TABLETS WERE FOUND
     Route: 065
  2. LACOSAMIDE [Suspect]
     Active Substance: LACOSAMIDE
     Indication: Epilepsy
     Dosage: EMPTY PACKETS OF 63 LACOSAMIDE 50MG TABLETS WERE FOUND
     Route: 065

REACTIONS (3)
  - Toxicity to various agents [Fatal]
  - Intentional overdose [Fatal]
  - Drug interaction [Fatal]
